FAERS Safety Report 10274378 (Version 1)
Quarter: 2014Q3

REPORT INFORMATION
  Report Type: Spontaneous
  Country: US (occurrence: US)
  Receive Date: 20140702
  Receipt Date: 20140702
  Transmission Date: 20150326
  Serious: Yes (Other)
  Sender: FDA-Public Use
  Company Number: US-TEVA-491878USA

PATIENT
  Age: 72 Year
  Sex: Male

DRUGS (4)
  1. DONEPEZIL [Suspect]
     Active Substance: DONEPEZIL
     Dosage: 10MG
     Route: 065
  2. LISINOPRIL. [Concomitant]
     Active Substance: LISINOPRIL
     Route: 065
  3. DONEPEZIL [Suspect]
     Active Substance: DONEPEZIL
     Dosage: 5MG, THEN INCREASED TO 10MG
     Route: 065
  4. METFORMIN [Concomitant]
     Active Substance: METFORMIN HYDROCHLORIDE
     Route: 065

REACTIONS (1)
  - Sick sinus syndrome [Recovered/Resolved]
